FAERS Safety Report 8463006-1 (Version None)
Quarter: 2012Q2

REPORT INFORMATION
  Report Type: 
  Country: None (occurrence: None)
  Receive Date: 20120625
  Receipt Date: 20120619
  Transmission Date: 20120825
  Serious: Yes (Life-Threatening, Hospitalization)
  Sender: FDA-Public Use
  Company Number: FR-GLAXOSMITHKLINE-B0809095A

PATIENT
  Age: 85 Year
  Sex: Female

DRUGS (7)
  1. FOLIC ACID [Concomitant]
     Route: 048
  2. TELMISARTAN [Concomitant]
     Route: 048
  3. METHOTREXATE [Concomitant]
     Indication: PEMPHIGOID
     Route: 048
  4. NEXIUM [Concomitant]
     Route: 048
  5. ZYRTEC [Concomitant]
  6. VALACYCLOVIR HYDROCHLORIDE [Suspect]
     Indication: HERPES VIRUS INFECTION
     Dosage: 1000MG THREE TIMES PER DAY
     Route: 048
     Dates: start: 20120507, end: 20120510
  7. CLOBETASOL PROPIONATE [Concomitant]

REACTIONS (4)
  - CONVULSION [None]
  - COMA [None]
  - RENAL FAILURE ACUTE [None]
  - OVERDOSE [None]
